FAERS Safety Report 21639777 (Version 2)
Quarter: 2024Q4

REPORT INFORMATION
  Report Type: Spontaneous
  Country: JP (occurrence: JP)
  Receive Date: 20221124
  Receipt Date: 20241106
  Transmission Date: 20250115
  Serious: Yes (Death, Hospitalization, Other)
  Sender: ALEXION PHARMACEUTICALS
  Company Number: 2022A385379

PATIENT
  Age: 69 Year

DRUGS (78)
  1. LYNPARZA [Suspect]
     Active Substance: OLAPARIB
     Indication: Prostate cancer
     Dosage: 400 MILLIGRAM, QD
  2. LYNPARZA [Suspect]
     Active Substance: OLAPARIB
     Dosage: 400 MILLIGRAM, QD
  3. LYNPARZA [Suspect]
     Active Substance: OLAPARIB
     Dosage: 400 MILLIGRAM, QD
  4. LYNPARZA [Suspect]
     Active Substance: OLAPARIB
     Dosage: 400 MILLIGRAM, QD
  5. LYNPARZA [Suspect]
     Active Substance: OLAPARIB
     Dosage: 400 MILLIGRAM, UNK
  6. LYNPARZA [Suspect]
     Active Substance: OLAPARIB
     Dosage: 400 MILLIGRAM, UNK
  7. LYNPARZA [Suspect]
     Active Substance: OLAPARIB
     Dosage: 400 MILLIGRAM, UNK
  8. LYNPARZA [Suspect]
     Active Substance: OLAPARIB
     Dosage: 400 MILLIGRAM, UNK
  9. LYNPARZA [Suspect]
     Active Substance: OLAPARIB
     Indication: Prostate cancer
     Dosage: 100 MILLIGRAM, BID
  10. LYNPARZA [Suspect]
     Active Substance: OLAPARIB
     Dosage: 100 MILLIGRAM, BID
  11. LYNPARZA [Suspect]
     Active Substance: OLAPARIB
     Dosage: 100 MILLIGRAM, BID
  12. LYNPARZA [Suspect]
     Active Substance: OLAPARIB
     Dosage: 100 MILLIGRAM, BID
  13. LYNPARZA [Suspect]
     Active Substance: OLAPARIB
     Indication: Prostate cancer
     Dosage: NUMBER OF SEPARATE DOSAGES UNKNOWN
  14. LYNPARZA [Suspect]
     Active Substance: OLAPARIB
     Dosage: NUMBER OF SEPARATE DOSAGES UNKNOWN
  15. LYNPARZA [Suspect]
     Active Substance: OLAPARIB
     Dosage: NUMBER OF SEPARATE DOSAGES UNKNOWN
  16. LYNPARZA [Suspect]
     Active Substance: OLAPARIB
     Dosage: NUMBER OF SEPARATE DOSAGES UNKNOWN
  17. CASODEX [Suspect]
     Active Substance: BICALUTAMIDE
     Indication: Prostate cancer
     Dosage: 80 MILLIGRAM, QD
  18. CASODEX [Suspect]
     Active Substance: BICALUTAMIDE
     Dosage: 80 MILLIGRAM, QD
  19. CASODEX [Suspect]
     Active Substance: BICALUTAMIDE
     Dosage: 80 MILLIGRAM, QD
  20. CASODEX [Suspect]
     Active Substance: BICALUTAMIDE
     Dosage: 80 MILLIGRAM, QD
  21. DEGARELIX [Concomitant]
     Active Substance: DEGARELIX
     Dosage: DOSE UNKNOWN
     Route: 065
  22. DEGARELIX [Concomitant]
     Active Substance: DEGARELIX
     Dosage: DOSE UNKNOWN
  23. DEGARELIX [Concomitant]
     Active Substance: DEGARELIX
     Dosage: DOSE UNKNOWN
     Route: 065
  24. DEGARELIX [Concomitant]
     Active Substance: DEGARELIX
     Dosage: DOSE UNKNOWN
  25. DEGARELIX [Concomitant]
     Active Substance: DEGARELIX
     Dosage: DOSE UNKNOWN
     Route: 065
  26. DEGARELIX [Concomitant]
     Active Substance: DEGARELIX
     Dosage: DOSE UNKNOWN
  27. DEGARELIX [Concomitant]
     Active Substance: DEGARELIX
     Dosage: DOSE UNKNOWN
     Route: 065
  28. DEGARELIX [Concomitant]
     Active Substance: DEGARELIX
     Dosage: DOSE UNKNOWN
  29. DENOSUMAB [Concomitant]
     Active Substance: DENOSUMAB
     Dosage: DOSE UNKNOWN
     Route: 065
  30. DENOSUMAB [Concomitant]
     Active Substance: DENOSUMAB
     Dosage: DOSE UNKNOWN
  31. DENOSUMAB [Concomitant]
     Active Substance: DENOSUMAB
     Dosage: DOSE UNKNOWN
     Route: 065
  32. DENOSUMAB [Concomitant]
     Active Substance: DENOSUMAB
     Dosage: DOSE UNKNOWN
  33. ENZALUTAMIDE [Concomitant]
     Active Substance: ENZALUTAMIDE
     Indication: Prostate cancer
     Dosage: DOSE UNKNOWN
     Route: 065
  34. ENZALUTAMIDE [Concomitant]
     Active Substance: ENZALUTAMIDE
     Dosage: DOSE UNKNOWN
  35. ENZALUTAMIDE [Concomitant]
     Active Substance: ENZALUTAMIDE
     Dosage: DOSE UNKNOWN
     Route: 065
  36. ENZALUTAMIDE [Concomitant]
     Active Substance: ENZALUTAMIDE
     Dosage: DOSE UNKNOWN
  37. DOCETAXEL [Concomitant]
     Active Substance: DOCETAXEL
     Dosage: DOSE UNKNOWN
     Route: 065
  38. DOCETAXEL [Concomitant]
     Active Substance: DOCETAXEL
     Dosage: DOSE UNKNOWN
  39. DOCETAXEL [Concomitant]
     Active Substance: DOCETAXEL
     Dosage: DOSE UNKNOWN
     Route: 065
  40. DOCETAXEL [Concomitant]
     Active Substance: DOCETAXEL
     Dosage: DOSE UNKNOWN
  41. DOCETAXEL [Concomitant]
     Active Substance: DOCETAXEL
     Dosage: DOSE UNKNOWN
     Route: 065
  42. DOCETAXEL [Concomitant]
     Active Substance: DOCETAXEL
     Dosage: DOSE UNKNOWN
  43. DOCETAXEL [Concomitant]
     Active Substance: DOCETAXEL
     Dosage: DOSE UNKNOWN
     Route: 065
  44. DOCETAXEL [Concomitant]
     Active Substance: DOCETAXEL
     Dosage: DOSE UNKNOWN
  45. CARBAMAZEPINE APS [Concomitant]
     Dosage: 32 MILLIGRAM, UNK
  46. CARBAMAZEPINE APS [Concomitant]
     Dosage: 32 MILLIGRAM, UNK
     Route: 065
  47. ETHINYL ESTRADIOL [Concomitant]
     Active Substance: ETHINYL ESTRADIOL
     Dosage: DOSE UNKNOWN
     Route: 065
  48. ETHINYL ESTRADIOL [Concomitant]
     Active Substance: ETHINYL ESTRADIOL
     Dosage: DOSE UNKNOWN
  49. ETHINYL ESTRADIOL [Concomitant]
     Active Substance: ETHINYL ESTRADIOL
     Dosage: DOSE UNKNOWN
     Route: 065
  50. ETHINYL ESTRADIOL [Concomitant]
     Active Substance: ETHINYL ESTRADIOL
     Dosage: DOSE UNKNOWN
  51. INSULIN NOS [Concomitant]
     Active Substance: INSULIN NOS
     Indication: Pancreatogenous diabetes
     Dosage: DOSE UNKNOWN
     Route: 065
  52. INSULIN NOS [Concomitant]
     Active Substance: INSULIN NOS
     Dosage: DOSE UNKNOWN
  53. INSULIN NOS [Concomitant]
     Active Substance: INSULIN NOS
     Dosage: DOSE UNKNOWN
     Route: 065
  54. INSULIN NOS [Concomitant]
     Active Substance: INSULIN NOS
     Dosage: DOSE UNKNOWN
  55. LYNPARZA [Suspect]
     Active Substance: OLAPARIB
     Indication: Prostate cancer
     Dosage: NUMBER OF SEPARATE DOSAGES UNKNOWN
  56. LYNPARZA [Suspect]
     Active Substance: OLAPARIB
     Dosage: NUMBER OF SEPARATE DOSAGES UNKNOWN
  57. LYNPARZA [Suspect]
     Active Substance: OLAPARIB
     Dosage: NUMBER OF SEPARATE DOSAGES UNKNOWN
  58. LYNPARZA [Suspect]
     Active Substance: OLAPARIB
     Dosage: NUMBER OF SEPARATE DOSAGES UNKNOWN
  59. LYNPARZA [Suspect]
     Active Substance: OLAPARIB
     Dosage: NUMBER OF SEPARATE DOSAGES UNKNOWN
  60. LYNPARZA [Suspect]
     Active Substance: OLAPARIB
     Dosage: NUMBER OF SEPARATE DOSAGES UNKNOWN
  61. LYNPARZA [Suspect]
     Active Substance: OLAPARIB
     Dosage: NUMBER OF SEPARATE DOSAGES UNKNOWN
  62. LYNPARZA [Suspect]
     Active Substance: OLAPARIB
     Dosage: NUMBER OF SEPARATE DOSAGES UNKNOWN
  63. LYNPARZA [Suspect]
     Active Substance: OLAPARIB
     Indication: Prostate cancer
     Dosage: 100 MILLIGRAM
  64. LYNPARZA [Suspect]
     Active Substance: OLAPARIB
     Dosage: 100 MILLIGRAM
  65. LYNPARZA [Suspect]
     Active Substance: OLAPARIB
     Dosage: 100 MILLIGRAM
  66. LYNPARZA [Suspect]
     Active Substance: OLAPARIB
     Dosage: 100 MILLIGRAM
  67. LYNPARZA [Suspect]
     Active Substance: OLAPARIB
     Dosage: NUMBER OF SEPARATE DOSAGES UNKNOWN
  68. LYNPARZA [Suspect]
     Active Substance: OLAPARIB
     Dosage: NUMBER OF SEPARATE DOSAGES UNKNOWN
  69. LYNPARZA [Suspect]
     Active Substance: OLAPARIB
     Dosage: NUMBER OF SEPARATE DOSAGES UNKNOWN
  70. LYNPARZA [Suspect]
     Active Substance: OLAPARIB
     Dosage: NUMBER OF SEPARATE DOSAGES UNKNOWN
  71. CASODEX [Suspect]
     Active Substance: BICALUTAMIDE
     Indication: Prostate cancer
     Dosage: 80 MILLIGRAM
  72. CASODEX [Suspect]
     Active Substance: BICALUTAMIDE
     Dosage: 80 MILLIGRAM
  73. CASODEX [Suspect]
     Active Substance: BICALUTAMIDE
     Dosage: 80 MILLIGRAM
  74. CASODEX [Suspect]
     Active Substance: BICALUTAMIDE
     Dosage: 80 MILLIGRAM
  75. CARBAMAZEPINE [Concomitant]
     Active Substance: CARBAMAZEPINE
     Dosage: 32 MILLIGRAM
     Route: 065
  76. CARBAMAZEPINE [Concomitant]
     Active Substance: CARBAMAZEPINE
     Dosage: 32 MILLIGRAM
  77. CARBAMAZEPINE [Concomitant]
     Active Substance: CARBAMAZEPINE
     Dosage: 32 MILLIGRAM
     Route: 065
  78. CARBAMAZEPINE [Concomitant]
     Active Substance: CARBAMAZEPINE
     Dosage: 32 MILLIGRAM

REACTIONS (10)
  - Death [Fatal]
  - Thrombophlebitis migrans [Unknown]
  - Pancreatic carcinoma recurrent [Recovering/Resolving]
  - Anaemia [Unknown]
  - Platelet count decreased [Recovered/Resolved]
  - Pain in extremity [Unknown]
  - Malignant neoplasm progression [Unknown]
  - Haemoglobin decreased [Unknown]
  - Blood lactate dehydrogenase increased [Unknown]
  - Osteonecrosis of jaw [Unknown]
